FAERS Safety Report 9261231 (Version 1)
Quarter: 2013Q2

REPORT INFORMATION
  Report Type: Spontaneous
  Country: US (occurrence: US)
  Receive Date: 20130429
  Receipt Date: 20130429
  Transmission Date: 20140414
  Serious: No
  Sender: FDA-Public Use
  Company Number: US-AMGEN-USASP2013003535

PATIENT
  Sex: Female

DRUGS (2)
  1. SENSIPAR [Suspect]
     Indication: BLOOD CALCIUM INCREASED
     Dosage: UNK
     Dates: start: 2012, end: 201212
  2. SENSIPAR [Suspect]
     Indication: BLOOD PARATHYROID HORMONE INCREASED

REACTIONS (13)
  - Blood calcium abnormal [Unknown]
  - Paraesthesia [Recovered/Resolved]
  - Hypoaesthesia [Recovered/Resolved]
  - Feeling abnormal [Recovering/Resolving]
  - Mental impairment [Recovering/Resolving]
  - Arthralgia [Recovering/Resolving]
  - Musculoskeletal pain [Recovering/Resolving]
  - Back pain [Recovering/Resolving]
  - Abdominal discomfort [Recovering/Resolving]
  - Activities of daily living impaired [Recovering/Resolving]
  - Fatigue [Recovering/Resolving]
  - Pain [Recovering/Resolving]
  - Pain in extremity [Recovering/Resolving]
